FAERS Safety Report 9314020 (Version 1)
Quarter: 2013Q2

REPORT INFORMATION
  Report Type: Spontaneous
  Country: US (occurrence: None)
  Receive Date: 20130524
  Receipt Date: 20130524
  Transmission Date: 20140414
  Serious: Yes (Hospitalization)
  Sender: FDA-Public Use
  Company Number: None

PATIENT
  Age: 42 Year
  Sex: Male
  Weight: 86 kg

DRUGS (3)
  1. WARFARIN [Suspect]
     Dosage: 10-15 MG DAILY PO
     Route: 048
     Dates: start: 20121015, end: 20130523
  2. IBUPROFEN [Suspect]
     Dates: start: 20130521, end: 20130523
  3. OXYCONTIN [Concomitant]

REACTIONS (4)
  - Haematoma [None]
  - Compartment syndrome [None]
  - International normalised ratio increased [None]
  - Blood creatine phosphokinase increased [None]
